FAERS Safety Report 5469888-X (Version None)
Quarter: 2007Q3

REPORT INFORMATION
  Report Type: 
  Country: None (occurrence: None)
  Receive Date: 20070927
  Receipt Date: 20070918
  Transmission Date: 20080115
  Serious: Yes (Hospitalization)
  Sender: FDA-Public Use
  Company Number: US-BAXTER-2007BH007761

PATIENT
  Age: 86 Year
  Sex: Female
  Weight: 74 kg

DRUGS (3)
  1. DIANEAL [Suspect]
     Indication: RENAL FAILURE CHRONIC
     Route: 033
     Dates: start: 20050101, end: 20070901
  2. DIANEAL [Suspect]
     Indication: RENAL FAILURE CHRONIC
     Route: 033
     Dates: start: 20050101, end: 20070901
  3. AMINO ACIDS [Suspect]
     Indication: NUTRITIONAL SUPPORT
     Route: 033
     Dates: start: 20070316, end: 20070901

REACTIONS (1)
  - FUNGAL PERITONITIS [None]
